FAERS Safety Report 8973371 (Version 1)
Quarter: 2012Q4

REPORT INFORMATION
  Report Type: 
  Country: US (occurrence: US)
  Receive Date: 20121218
  Receipt Date: 20121218
  Transmission Date: 20130627
  Serious: Yes (Death)
  Sender: FDA-Public Use
  Company Number: US-BRISTOL-MYERS SQUIBB COMPANY-16949349

PATIENT
  Age: 5 None
  Sex: Female

DRUGS (2)
  1. ABILIFY [Suspect]
     Dosage: 5mg:Nv11,10mg:Apr12
     Dates: start: 201111
  2. PROZAC [Concomitant]

REACTIONS (1)
  - Completed suicide [Fatal]
